FAERS Safety Report 19486151 (Version 3)
Quarter: 2022Q1

REPORT INFORMATION
  Report Type: Spontaneous
  Country: JP (occurrence: JP)
  Receive Date: 20210702
  Receipt Date: 20220114
  Transmission Date: 20220423
  Serious: Yes (Hospitalization, Other)
  Sender: FDA-Public Use
  Company Number: JP-AMGEN-JPNSP2021100016

PATIENT
  Age: 13 Year

DRUGS (1)
  1. BLINCYTO [Suspect]
     Active Substance: BLINATUMOMAB
     Indication: Acute lymphocytic leukaemia
     Dosage: 15 MICROGRAM, QD
     Route: 041

REACTIONS (2)
  - Leukaemic infiltration extramedullary [Not Recovered/Not Resolved]
  - Bone marrow leukaemic cell infiltration [Unknown]
